FAERS Safety Report 4548226-0 (Version None)
Quarter: 2004Q4

REPORT INFORMATION
  Report Type: 
  Country: None (occurrence: None)
  Receive Date: 20041220
  Receipt Date: 20040216
  Transmission Date: 20050328
  Serious: Yes (Hospitalization)
  Sender: FDA-Public Use
  Company Number: US_990319041

PATIENT
  Sex: Male
  Weight: 77 kg

DRUGS (5)
  1. HUMULIN N [Suspect]
     Indication: DIABETES MELLITUS
  2. ILETIN [Suspect]
     Indication: DIABETES MELLITUS
     Dosage: 34 U/IN THE MORNING
     Dates: start: 20010101
  3. REGULAR ILETIN II (PORK) [Suspect]
     Indication: DIABETES MELLITUS
     Dosage: 20U/IN THE MORNING
  4. HUMULIN U [Suspect]
     Indication: DIABETES MELLITUS
     Dosage: 32 U/DAY
     Dates: start: 19990304, end: 19990304
  5. ILETIN [Suspect]
     Indication: DIABETES MELLITUS
     Dates: start: 19950101

REACTIONS (3)
  - BLOOD GLUCOSE INCREASED [None]
  - DRUG INEFFECTIVE [None]
  - SURGERY [None]
